FAERS Safety Report 11436732 (Version 1)
Quarter: 2015Q3

REPORT INFORMATION
  Report Type: Spontaneous
  Country: US (occurrence: US)
  Receive Date: 20150821
  Receipt Date: 20150821
  Transmission Date: 20151125
  Serious: No
  Sender: FDA-Public Use
  Company Number: US-ELI_LILLY_AND_COMPANY-US201402008562

PATIENT
  Sex: Male
  Weight: 79.37 kg

DRUGS (2)
  1. CIALIS [Suspect]
     Active Substance: TADALAFIL
     Indication: ERECTILE DYSFUNCTION
     Dosage: 5 MG, QD
     Route: 065
     Dates: start: 20140117
  2. CIALIS [Suspect]
     Active Substance: TADALAFIL
     Dosage: 5 MG, QD
     Dates: start: 20140411

REACTIONS (3)
  - Urine output decreased [Unknown]
  - Drug ineffective [Not Recovered/Not Resolved]
  - Hypoacusis [Not Recovered/Not Resolved]
